FAERS Safety Report 6578697-X (Version None)
Quarter: 2010Q1

REPORT INFORMATION
  Report Type: 
  Country: None (occurrence: None)
  Receive Date: 20100202
  Receipt Date: 20100119
  Transmission Date: 20100710
  Serious: Yes (Life-Threatening)
  Sender: FDA-Public Use
  Company Number: 1000011565

PATIENT
  Age: 81 Year
  Sex: Female

DRUGS (5)
  1. CITALOPRAM HYDROBROMIDE [Suspect]
     Indication: DEPRESSION
     Dosage: 20 MG (20 MG, 1 IN 1 D), ORAL
     Route: 048
     Dates: start: 20091016, end: 20091022
  2. DAFALGAN [Concomitant]
  3. ATENOLOL [Concomitant]
  4. TOPALGIC [Concomitant]
  5. CALCIPRAT D3 [Concomitant]

REACTIONS (5)
  - AGITATION [None]
  - CONVULSION [None]
  - DISORIENTATION [None]
  - HYPONATRAEMIA [None]
  - LOSS OF CONSCIOUSNESS [None]
